FAERS Safety Report 19358578 (Version 2)
Quarter: 2021Q3

REPORT INFORMATION
  Report Type: Spontaneous
  Country: US (occurrence: US)
  Receive Date: 20210602
  Receipt Date: 20210701
  Transmission Date: 20211014
  Serious: No
  Sender: FDA-Public Use
  Company Number: US-BAYER-2021-146564

PATIENT
  Age: 83 Year

DRUGS (1)
  1. MIRALAX [Suspect]
     Active Substance: POLYETHYLENE GLYCOL 3350
     Indication: DYSCHEZIA
     Dosage: 17 G (2?3 TIMES DAILY)
     Route: 065

REACTIONS (1)
  - Dyschezia [Unknown]
